FAERS Safety Report 11096224 (Version 1)
Quarter: 2015Q2

REPORT INFORMATION
  Report Type: Spontaneous
  Country: GB (occurrence: GB)
  Receive Date: 20150507
  Receipt Date: 20150507
  Transmission Date: 20150821
  Serious: Yes (Other)
  Sender: FDA-Public Use
  Company Number: GB-TEVA-559878ACC

PATIENT
  Age: 73 Year
  Sex: Male
  Weight: 76.2 kg

DRUGS (2)
  1. ATENOLOL. [Concomitant]
     Active Substance: ATENOLOL
  2. AMLODIPINE [Suspect]
     Active Substance: AMLODIPINE BESYLATE
     Indication: HYPERTENSION
     Dosage: 1 DOSAGE FORMS DAILY;
     Route: 048
     Dates: start: 201412, end: 201502

REACTIONS (4)
  - Pollakiuria [Unknown]
  - Micturition urgency [Unknown]
  - Dysuria [Unknown]
  - Urinary retention [Unknown]

NARRATIVE: CASE EVENT DATE: 201412
